FAERS Safety Report 18672365 (Version 1)
Quarter: 2020Q4

REPORT INFORMATION
  Report Type: Spontaneous
  Country: US (occurrence: US)
  Receive Date: 20201228
  Receipt Date: 20201228
  Transmission Date: 20210114
  Serious: Yes (Death, Other)
  Sender: FDA-Public Use
  Company Number: US-PURDUE-USA-2020-0179973

PATIENT
  Sex: Male

DRUGS (1)
  1. HYDROMORPHONE TABLETS [Suspect]
     Active Substance: HYDROMORPHONE
     Indication: PAIN
     Dosage: UNK, DAILY
     Route: 048

REACTIONS (2)
  - Overdose [Unknown]
  - Death [Fatal]

NARRATIVE: CASE EVENT DATE: 20071027
